FAERS Safety Report 9266105 (Version 3)
Quarter: 2013Q2

REPORT INFORMATION
  Report Type: Spontaneous
  Country: US (occurrence: US)
  Receive Date: 20130501
  Receipt Date: 20130619
  Transmission Date: 20140414
  Serious: Yes (Hospitalization)
  Sender: FDA-Public Use
  Company Number: US-009507513-1304USA017206

PATIENT
  Age: 49 Year
  Sex: Female

DRUGS (3)
  1. CALDEROL [Suspect]
     Indication: HYPOCALCAEMIA
     Route: 048
  2. POTASSIUM PHOSPHATE, DIBASIC [Suspect]
     Indication: HYPOPHOSPHATAEMIA
  3. CALCIUM (UNSPECIFIED) [Concomitant]
     Indication: HYPOCALCAEMIA

REACTIONS (1)
  - Nephrocalcinosis [Recovering/Resolving]
